FAERS Safety Report 11011090 (Version 1)
Quarter: 2015Q2

REPORT INFORMATION
  Report Type: Spontaneous
  Country: US (occurrence: US)
  Receive Date: 20150410
  Receipt Date: 20150410
  Transmission Date: 20150821
  Serious: No
  Sender: FDA-Public Use
  Company Number: US-BAYER-2015-117869

PATIENT
  Age: 88 Year
  Sex: Male
  Weight: 63.49 kg

DRUGS (2)
  1. ECOTRIN [Concomitant]
     Active Substance: ASPIRIN
     Dosage: 1 DF, QD
  2. ALEVE PM [Suspect]
     Active Substance: DIPHENHYDRAMINE HYDROCHLORIDE\NAPROXEN SODIUM
     Indication: SLEEP DISORDER THERAPY
     Dosage: 2 DF, TIW BEFORE BED
     Route: 048
     Dates: start: 2014

REACTIONS (1)
  - Medication error [None]

NARRATIVE: CASE EVENT DATE: 2014
